FAERS Safety Report 21395388 (Version 1)
Quarter: 2022Q3

REPORT INFORMATION
  Report Type: Spontaneous
  Country: US (occurrence: US)
  Receive Date: 20220930
  Receipt Date: 20220930
  Transmission Date: 20221027
  Serious: Yes (Life-Threatening, Hospitalization)
  Sender: FDA-Public Use
  Company Number: US-AVET LIFESCIENCES LTD-2022-AVET-000171

PATIENT
  Age: 16 Year
  Sex: Male

DRUGS (2)
  1. ACETAMINOPHEN [Suspect]
     Active Substance: ACETAMINOPHEN
     Dosage: 40000 MILLIGRAM
     Route: 065
  2. DIPHENHYDRAMINE HYDROCHLORIDE [Suspect]
     Active Substance: DIPHENHYDRAMINE HYDROCHLORIDE
     Dosage: 2000 MILLIGRAM

REACTIONS (9)
  - Tachycardia [Unknown]
  - Disorientation [Unknown]
  - Agitation [Unknown]
  - Flushing [Unknown]
  - Mydriasis [None]
  - Hyperreflexia [None]
  - Hypertonia [Unknown]
  - Clonus [Unknown]
  - Overdose [Unknown]
